FAERS Safety Report 5783000-9 (Version None)
Quarter: 2008Q2

REPORT INFORMATION
  Report Type: 
  Country: None (occurrence: None)
  Receive Date: 20080619
  Receipt Date: 20080428
  Transmission Date: 20081010
  Serious: No
  Sender: FDA-Public Use
  Company Number: US-1166095

PATIENT
  Age: 8 Year
  Sex: Female
  Weight: 22.6799 kg

DRUGS (5)
  1. PATADAY SOLUTION [Suspect]
     Indication: EYE IRRITATION
     Dosage: OPHTHALMIC
     Route: 047
     Dates: start: 20080416, end: 20080427
  2. PATADAY SOLUTION [Suspect]
     Indication: MULTIPLE ALLERGIES
     Dosage: OPHTHALMIC
     Route: 047
     Dates: start: 20080416, end: 20080427
  3. LORATADINE [Concomitant]
  4. FLONASE [Concomitant]
  5. GENTEAL [Concomitant]

REACTIONS (4)
  - DRUG INEFFECTIVE [None]
  - EYE IRRITATION [None]
  - OCULAR DISCOMFORT [None]
  - SENSATION OF FOREIGN BODY [None]
